FAERS Safety Report 25705339 (Version 1)
Quarter: 2025Q3

REPORT INFORMATION
  Report Type: Spontaneous
  Country: US (occurrence: None)
  Receive Date: 20250819
  Receipt Date: 20250819
  Transmission Date: 20251021
  Serious: Yes (Death)
  Sender: FDA-CTU
  Company Number: None

PATIENT
  Age: 44 Year
  Sex: Female
  Weight: 73.8 kg

DRUGS (3)
  1. AMTAGVI [Suspect]
     Active Substance: LIFILEUCEL
     Indication: Metastatic malignant melanoma
     Route: 042
     Dates: start: 20250728, end: 20250728
  2. CYCLOPHOSPHAMIDE [Suspect]
     Active Substance: CYCLOPHOSPHAMIDE
  3. FLUDARABINE [Suspect]
     Active Substance: FLUDARABINE PHOSPHATE

REACTIONS (11)
  - Pyrexia [None]
  - Treatment delayed [None]
  - Hypoxia [None]
  - Hypotension [None]
  - Respiratory failure [None]
  - Delirium [None]
  - Metabolic acidosis [None]
  - Atrial fibrillation [None]
  - Liver function test increased [None]
  - Acute kidney injury [None]
  - Cardiac arrest [None]

NARRATIVE: CASE EVENT DATE: 20250809
